FAERS Safety Report 17260053 (Version 1)
Quarter: 2020Q1

REPORT INFORMATION
  Report Type: Spontaneous
  Country: DE (occurrence: DE)
  Receive Date: 20200111
  Receipt Date: 20200111
  Transmission Date: 20200409
  Serious: Yes (Hospitalization, Other)
  Sender: FDA-Public Use
  Company Number: DE-DRREDDYS-GER/GER/20/0118071

PATIENT
  Age: 55 Year
  Sex: Female
  Weight: 52 kg

DRUGS (8)
  1. SEROQUEL [Concomitant]
     Active Substance: QUETIAPINE FUMARATE
     Indication: ATTENTION DEFICIT/HYPERACTIVITY DISORDER
     Dosage: 25 MG, QD
     Dates: start: 20190720
  2. SEROQUEL [Concomitant]
     Active Substance: QUETIAPINE FUMARATE
     Indication: PANIC DISORDER
  3. UTIPRO PLUS [Concomitant]
     Indication: CYSTITIS
     Dosage: UNK
     Dates: start: 20170928, end: 20170929
  4. COTRIMOXAZOL [Concomitant]
     Active Substance: SULFAMETHOXAZOLE\TRIMETHOPRIM
     Indication: CYSTITIS
     Dosage: UNK
     Dates: start: 20170925, end: 20170927
  5. MARCUMAR [Concomitant]
     Active Substance: PHENPROCOUMON
     Indication: PRODUCT USED FOR UNKNOWN INDICATION
     Dosage: UNK
     Dates: start: 20060720
  6. FURADANTIN [Concomitant]
     Active Substance: NITROFURANTOIN
     Indication: CYSTITIS
     Dosage: UNK
     Dates: start: 201710
  7. CIPROFLOXACIN. [Suspect]
     Active Substance: CIPROFLOXACIN
     Indication: CYSTITIS
     Dosage: 250 MG, BID
     Dates: start: 20170930, end: 20171004
  8. SEROQUEL [Concomitant]
     Active Substance: QUETIAPINE FUMARATE
     Indication: ANXIETY DISORDER

REACTIONS (12)
  - Dysgeusia [Unknown]
  - Dyspnoea [Unknown]
  - Suicidal ideation [Unknown]
  - Nightmare [Unknown]
  - Fatigue [Unknown]
  - Panic attack [Not Recovered/Not Resolved]
  - Memory impairment [Unknown]
  - Anxiety disorder [Not Recovered/Not Resolved]
  - Blood urine present [Unknown]
  - Balance disorder [Unknown]
  - Disturbance in attention [Unknown]
  - Sleep disorder [Unknown]

NARRATIVE: CASE EVENT DATE: 20170930
